FAERS Safety Report 24762169 (Version 1)
Quarter: 2024Q4

REPORT INFORMATION
  Report Type: Spontaneous
  Country: DE (occurrence: DE)
  Receive Date: 20241221
  Receipt Date: 20241221
  Transmission Date: 20250115
  Serious: Yes (Other)
  Sender: ROCHE
  Company Number: DE-ROCHE-10000162619

PATIENT
  Age: 60 Year
  Sex: Female

DRUGS (1)
  1. OCREVUS [Suspect]
     Active Substance: OCRELIZUMAB
     Indication: Relapsing-remitting multiple sclerosis
     Route: 042
     Dates: start: 2019

REACTIONS (2)
  - Cerebrospinal fluid leakage [Unknown]
  - Cervical dysplasia [Unknown]

NARRATIVE: CASE EVENT DATE: 20241001
